FAERS Safety Report 18064009 (Version 2)
Quarter: 2020Q3

REPORT INFORMATION
  Report Type: Report from Study
  Country: None (occurrence: US)
  Receive Date: 20200724
  Receipt Date: 20200818
  Transmission Date: 20201103
  Serious: Yes (Other)
  Sender: FDA-Public Use
  Company Number: US-ABBVIE-20K-163-3495929-00

PATIENT
  Age: 66 Year
  Sex: Female
  Weight: 67.19 kg

DRUGS (10)
  1. METOPROLOL. [Concomitant]
     Active Substance: METOPROLOL
     Indication: BLOOD PRESSURE MEASUREMENT
  2. LOSARTAN. [Concomitant]
     Active Substance: LOSARTAN
     Indication: GASTROOESOPHAGEAL REFLUX DISEASE
  3. RINVOQ [Suspect]
     Active Substance: UPADACITINIB
     Route: 048
     Dates: start: 20200727
  4. RINVOQ [Suspect]
     Active Substance: UPADACITINIB
     Indication: RHEUMATOID ARTHRITIS
     Route: 048
     Dates: start: 2020, end: 20200629
  5. AMLODIPINE [Concomitant]
     Active Substance: AMLODIPINE BESYLATE
     Indication: BLOOD PRESSURE MEASUREMENT
  6. PREDNISONE. [Concomitant]
     Active Substance: PREDNISONE
     Indication: BLOOD PRESSURE MEASUREMENT
  7. PANTOPRAZOLE [Concomitant]
     Active Substance: PANTOPRAZOLE
     Indication: GASTROOESOPHAGEAL REFLUX DISEASE
  8. IBUPROFEN. [Concomitant]
     Active Substance: IBUPROFEN
     Indication: PRODUCT USED FOR UNKNOWN INDICATION
  9. ASPIRIN (E.C.) [Concomitant]
     Active Substance: ASPIRIN
     Indication: PRODUCT USED FOR UNKNOWN INDICATION
  10. CALCIUM WITH VITAMIN D [CALCIUM CARBONATE;COLECALCIFEROL] [Concomitant]
     Indication: PRODUCT USED FOR UNKNOWN INDICATION

REACTIONS (4)
  - Device fastener issue [Recovered/Resolved]
  - Arthritis [Unknown]
  - Postoperative wound infection [Recovered/Resolved]
  - Device loosening [Recovered/Resolved]

NARRATIVE: CASE EVENT DATE: 202006
